FAERS Safety Report 7473754-8 (Version None)
Quarter: 2011Q2

REPORT INFORMATION
  Report Type: 
  Country: None (occurrence: None)
  Receive Date: 20110511
  Receipt Date: 20100204
  Transmission Date: 20111010
  Serious: Yes (Other)
  Sender: FDA-Public Use
  Company Number: DE-GENENTECH-318295

PATIENT
  Age: 80 Year
  Sex: Male

DRUGS (5)
  1. GENERAL ANESTHESIA (UNK INGREDIENTS) [Concomitant]
     Indication: SURGERY
     Dosage: UNK
  2. ISOPTO MAX [Concomitant]
     Indication: PRODUCT USED FOR UNKNOWN INDICATION
     Dosage: UNK
  3. LUCENTIS [Suspect]
     Indication: AGE-RELATED MACULAR DEGENERATION
     Dosage: UNK
     Route: 031
     Dates: start: 20100122
  4. EYE DROPS NOS [Concomitant]
     Indication: PRODUCT USED FOR UNKNOWN INDICATION
     Dosage: UNK
  5. EYE OINTMENT NOS [Concomitant]
     Indication: PRODUCT USED FOR UNKNOWN INDICATION
     Dosage: UNK

REACTIONS (8)
  - BLINDNESS [None]
  - RETINAL ARTERY THROMBOSIS [None]
  - LACRIMATION INCREASED [None]
  - VERTIGO [None]
  - EYE PAIN [None]
  - HERPES ZOSTER [None]
  - NAUSEA [None]
  - EYE INFLAMMATION [None]
